FAERS Safety Report 9116815 (Version 1)
Quarter: 2013Q1

REPORT INFORMATION
  Report Type: Report from Study
  Country: US (occurrence: US)
  Receive Date: 20130225
  Receipt Date: 20130225
  Transmission Date: 20140127
  Serious: No
  Sender: FDA-Public Use
  Company Number: US-VERTEX PHARMACEUTICALS INC.-2013-002449

PATIENT
  Sex: Male
  Weight: 76 kg

DRUGS (10)
  1. VX-950 (TELAPREVIR) [Suspect]
     Indication: HEPATITIS C
     Dosage: 750 MG, TID
     Route: 048
     Dates: start: 20130204
  2. PEGASYS [Suspect]
     Indication: HEPATITIS C
     Dosage: 180 ?G, QW
     Route: 058
     Dates: start: 20130204
  3. RIBAVIRIN [Suspect]
     Indication: HEPATITIS C
     Dosage: 600 MG, BID
     Route: 048
     Dates: start: 20130204
  4. LOPRESSOR [Concomitant]
     Dosage: 25 MG, QD
     Route: 048
  5. CAPTOPRIL [Concomitant]
     Dosage: 12.5 MG, QD
     Route: 048
  6. NOVOLOG MIX [Concomitant]
     Dosage: 26 UT, QD
     Route: 058
  7. VITAMIN D [Concomitant]
     Dosage: 1 DF, QD
     Route: 048
  8. ASPIRIN [Concomitant]
     Dosage: 1 DF, QD
     Route: 048
  9. PLAVIX [Concomitant]
     Dosage: 75 MG, QD
     Route: 048
  10. PRILOSEC [Concomitant]
     Dosage: 20 MG, QD
     Route: 048

REACTIONS (5)
  - Dizziness [Unknown]
  - Chills [Unknown]
  - Pain [Unknown]
  - Nausea [Unknown]
  - Diarrhoea [Unknown]
